FAERS Safety Report 18902937 (Version 1)
Quarter: 2021Q1

REPORT INFORMATION
  Report Type: Spontaneous
  Country: BR (occurrence: BR)
  Receive Date: 20210217
  Receipt Date: 20210217
  Transmission Date: 20210420
  Serious: Yes (Hospitalization)
  Sender: FDA-Public Use
  Company Number: BR-ASTELLAS-2021US005491

PATIENT
  Age: 48 Year
  Sex: Male
  Weight: 60 kg

DRUGS (12)
  1. POLYMYXIN [Concomitant]
     Active Substance: POLYMYXIN
     Indication: INFECTION
     Dosage: 500 MG/ML, EVERY 12 HOURS (ENDOVENOUS)
     Route: 065
  2. MYCAMINE [Suspect]
     Active Substance: MICAFUNGIN SODIUM
     Indication: INFECTION
     Dosage: 100 MG (2 AMPOULES PER DAY), ONCE DAILY (ENDOVENOUS)
     Route: 065
     Dates: start: 20210127, end: 20210201
  3. METHADONE [Concomitant]
     Active Substance: METHADONE HYDROCHLORIDE
     Indication: PRODUCT USED FOR UNKNOWN INDICATION
     Dosage: 10 MG, EVERY 12 HOURS (NASOENTERAL TUBE)
     Route: 045
  4. PARACETAMOL [Concomitant]
     Active Substance: ACETAMINOPHEN
     Indication: PRODUCT USED FOR UNKNOWN INDICATION
     Dosage: (200 MG/ML) 40 DROPS, EVERY 6 HOURS
     Route: 045
  5. QUETIAPINE. [Concomitant]
     Active Substance: QUETIAPINE
     Indication: PRODUCT USED FOR UNKNOWN INDICATION
     Dosage: 25 MG, EVERY 12 HOURS (NASOENTERAL TUBE)
     Route: 045
  6. BROMOPRIDE [Concomitant]
     Active Substance: BROMOPRIDE
     Indication: PRODUCT USED FOR UNKNOWN INDICATION
     Dosage: (4 MG/ML) 30 DROPS, EVERY 8 HOURS (BY NASOENTERAL TUBE)
     Route: 045
  7. DIPYRONE [Concomitant]
     Active Substance: DIPYRONE
     Indication: PRODUCT USED FOR UNKNOWN INDICATION
     Dosage: 500 MG/ML, EVERY 6 HOURS (ENDOVENOUS)
     Route: 065
  8. OMEPRAZOLE. [Concomitant]
     Active Substance: OMEPRAZOLE
     Indication: PRODUCT USED FOR UNKNOWN INDICATION
     Dosage: 40 MG, ONCE DAILY (ENDOVENOUS)
     Route: 065
  9. PHENYTOIN. [Concomitant]
     Active Substance: PHENYTOIN
     Indication: PRODUCT USED FOR UNKNOWN INDICATION
     Dosage: 100 MG, EVERY 8 HOURS (NASOENTERAL TUBE)
     Route: 045
  10. ENOXAPARIN [Concomitant]
     Active Substance: ENOXAPARIN
     Indication: THROMBOSIS PROPHYLAXIS
     Route: 058
  11. MEROPENEM. [Concomitant]
     Active Substance: MEROPENEM
     Indication: PRODUCT USED FOR UNKNOWN INDICATION
     Dosage: 1 G, EVERY 12 HOURS (ENDOVENOUS)
     Route: 065
  12. DIAZEPAM. [Concomitant]
     Active Substance: DIAZEPAM
     Indication: PRODUCT USED FOR UNKNOWN INDICATION
     Dosage: 10 MG/ML, EVERY 12 HOURS (ENDOVENOUS)
     Route: 065

REACTIONS (3)
  - Erythema [Recovering/Resolving]
  - Drug interaction [Unknown]
  - Product use in unapproved indication [Unknown]

NARRATIVE: CASE EVENT DATE: 20210127
